FAERS Safety Report 5642191-0 (Version None)
Quarter: 2008Q1

REPORT INFORMATION
  Report Type: 
  Country: None (occurrence: None)
  Receive Date: 20080225
  Receipt Date: 20080125
  Transmission Date: 20080703
  Serious: Yes (Hospitalization)
  Sender: FDA-Public Use
  Company Number: 20084762

PATIENT
  Age: 14 Year
  Sex: Female
  Weight: 50 kg

DRUGS (1)
  1. LIORESAL [Suspect]
     Indication: MUSCLE SPASTICITY
     Dosage: 520 MCG, DAILY, INTRATHECAL
     Route: 037

REACTIONS (9)
  - AGITATION [None]
  - CLONUS [None]
  - FEAR [None]
  - HYPERREFLEXIA [None]
  - MUSCLE SPASTICITY [None]
  - PRURITUS [None]
  - PYREXIA [None]
  - TACHYCARDIA [None]
  - WITHDRAWAL SYNDROME [None]
